FAERS Safety Report 25719292 (Version 4)
Quarter: 2025Q3

REPORT INFORMATION
  Report Type: Spontaneous
  Country: US (occurrence: US)
  Receive Date: 20250824
  Receipt Date: 20250910
  Transmission Date: 20251020
  Serious: No
  Sender: SANOFI AVENTIS
  Company Number: US-SA-2025SA249525

PATIENT
  Age: 31 Year
  Sex: Male

DRUGS (3)
  1. TZIELD [Suspect]
     Active Substance: TEPLIZUMAB-MZWV
     Route: 065
     Dates: start: 202508, end: 20250814
  2. TZIELD [Suspect]
     Active Substance: TEPLIZUMAB-MZWV
     Route: 065
     Dates: start: 20250815, end: 202508
  3. TZIELD [Suspect]
     Active Substance: TEPLIZUMAB-MZWV
     Route: 065
     Dates: start: 20250825

REACTIONS (8)
  - Bone pain [Recovered/Resolved]
  - Malaise [Recovered/Resolved]
  - Flushing [Unknown]
  - Hyperhidrosis [Recovered/Resolved]
  - Pruritus [Recovered/Resolved]
  - Pyrexia [Recovered/Resolved]
  - Urticaria [Recovered/Resolved]
  - Rash [Unknown]

NARRATIVE: CASE EVENT DATE: 20250101
